FAERS Safety Report 7032736-0 (Version None)
Quarter: 2010Q4

REPORT INFORMATION
  Report Type: 
  Country: None (occurrence: None)
  Receive Date: 20101007
  Receipt Date: 20090414
  Transmission Date: 20110411
  Serious: Yes (Death, Hospitalization)
  Sender: FDA-Public Use
  Company Number: AR-SANOFI-AVENTIS-200913749GDDC

PATIENT
  Age: 66 Year
  Sex: Male
  Weight: 114 kg

DRUGS (10)
  1. AFLIBERCEPT [Suspect]
     Dosage: DOSE UNIT: 6 MG/KG
     Route: 042
     Dates: start: 20090403, end: 20090403
  2. DOCETAXEL [Suspect]
     Dosage: DOSE UNIT: 75 MG/M**2
     Route: 042
     Dates: start: 20090403, end: 20090403
  3. PREDNISONE [Suspect]
     Route: 048
     Dates: start: 20090109, end: 20090412
  4. LEUPRORELIN [Concomitant]
     Indication: HORMONE REPLACEMENT THERAPY
     Dates: start: 20080101
  5. ASPIRIN [Concomitant]
     Dates: start: 20030101
  6. ATORVASTATIN [Concomitant]
     Dates: start: 20030101
  7. ALPRAZOLAM [Concomitant]
     Dates: start: 20050101
  8. ATENOLOL [Concomitant]
     Dates: start: 20030101
  9. TELMISARTAN [Concomitant]
     Dates: start: 20030101
  10. BETAMETHASONE [Concomitant]
     Dates: start: 20090122, end: 20090122

REACTIONS (3)
  - NECROTISING FASCIITIS [None]
  - SEPSIS [None]
  - VENOUS THROMBOSIS LIMB [None]
